FAERS Safety Report 15763963 (Version 1)
Quarter: 2018Q4

REPORT INFORMATION
  Report Type: Report from Study
  Country: TW (occurrence: TW)
  Receive Date: 20181227
  Receipt Date: 20181227
  Transmission Date: 20190205
  Serious: Yes (Hospitalization)
  Sender: FDA-Public Use
  Company Number: TW-TAKEDA-2018TUS036545

PATIENT
  Age: 57 Year
  Sex: Female

DRUGS (3)
  1. PREDNISOLONE. [Concomitant]
     Active Substance: PREDNISOLONE
     Dosage: UNK
     Dates: start: 20160109
  2. VEDOLIZUMAB [Suspect]
     Active Substance: VEDOLIZUMAB
     Indication: CROHN^S DISEASE
     Dosage: 300 MG, UNK
     Route: 042
     Dates: start: 20181210
  3. MESALAZINE [Concomitant]
     Active Substance: MESALAMINE
     Dosage: UNK
     Dates: start: 20151220

REACTIONS (6)
  - Abdominal pain [Recovering/Resolving]
  - Pyrexia [Recovering/Resolving]
  - Leukopenia [Recovering/Resolving]
  - Diarrhoea [Recovering/Resolving]
  - C-reactive protein increased [Recovering/Resolving]
  - Hypotension [Unknown]

NARRATIVE: CASE EVENT DATE: 20181210
